FAERS Safety Report 4888131-3 (Version None)
Quarter: 2006Q1

REPORT INFORMATION
  Report Type: 
  Country: None (occurrence: None)
  Receive Date: 20060123
  Receipt Date: 20060112
  Transmission Date: 20060701
  Serious: Yes (Disabling, Other)
  Sender: FDA-Public Use
  Company Number: US-MERCK-0601USA01816

PATIENT
  Age: 59 Year
  Sex: Female
  Weight: 119 kg

DRUGS (8)
  1. VIOXX [Suspect]
     Indication: OSTEOARTHRITIS
     Route: 048
     Dates: start: 20000101, end: 20040101
  2. VIOXX [Suspect]
     Route: 048
     Dates: start: 20000101, end: 20040101
  3. PLAVIX [Concomitant]
     Route: 065
     Dates: start: 20040101
  4. LIPITOR [Concomitant]
     Route: 065
     Dates: start: 20040101
  5. AMBIEN [Concomitant]
     Route: 065
  6. HYDROCODONE BITARTRATE [Concomitant]
     Route: 065
  7. LOTREL [Concomitant]
     Route: 065
     Dates: start: 20040101
  8. ASPIRIN [Concomitant]
     Route: 065

REACTIONS (6)
  - ARTERIOSCLEROSIS [None]
  - BLOOD CHOLESTEROL INCREASED [None]
  - CARDIAC DISORDER [None]
  - CEREBROVASCULAR ACCIDENT [None]
  - CORONARY ARTERY DISEASE [None]
  - MYOCARDIAL INFARCTION [None]
